FAERS Safety Report 13210240 (Version 2)
Quarter: 2017Q1

REPORT INFORMATION
  Report Type: Report from Study
  Country: None (occurrence: US)
  Receive Date: 20170210
  Receipt Date: 20170323
  Transmission Date: 20170428
  Serious: Yes (Hospitalization, Other)
  Sender: FDA-Public Use
  Company Number: US-ABBVIE-17K-163-1862189-00

PATIENT
  Age: 71 Year
  Sex: Male
  Weight: 78.54 kg

DRUGS (10)
  1. GABAPENTIN. [Suspect]
     Active Substance: GABAPENTIN
     Indication: BACK PAIN
     Route: 065
     Dates: start: 201611, end: 201611
  2. LEVOTHYROXINE. [Concomitant]
     Active Substance: LEVOTHYROXINE
     Indication: HYPOTHYROIDISM
  3. ELIQUIS [Concomitant]
     Active Substance: APIXABAN
     Indication: THROMBOSIS PROPHYLAXIS
     Dates: start: 2017
  4. HUMIRA [Suspect]
     Active Substance: ADALIMUMAB
     Indication: RHEUMATOID ARTHRITIS
     Route: 058
     Dates: start: 2016, end: 20161201
  5. FOSAMAX [Concomitant]
     Active Substance: ALENDRONATE SODIUM
     Indication: OSTEOPOROSIS
  6. LIPITOR [Concomitant]
     Active Substance: ATORVASTATIN CALCIUM
     Indication: BLOOD CHOLESTEROL INCREASED
  7. VITAMIN D3 [Concomitant]
     Active Substance: CHOLECALCIFEROL
     Indication: PRODUCT USED FOR UNKNOWN INDICATION
  8. CALCIUM CITRATE [Concomitant]
     Active Substance: CALCIUM CITRATE
     Indication: PRODUCT USED FOR UNKNOWN INDICATION
  9. OXYCODONE [Concomitant]
     Active Substance: OXYCODONE
     Indication: PRODUCT USED FOR UNKNOWN INDICATION
  10. ALEVE [Concomitant]
     Active Substance: NAPROXEN SODIUM
     Indication: PRODUCT USED FOR UNKNOWN INDICATION

REACTIONS (13)
  - Spinal cord compression [Recovered/Resolved]
  - Weight increased [Recovering/Resolving]
  - Paraplegia [Recovering/Resolving]
  - Back disorder [Unknown]
  - Back injury [Recovering/Resolving]
  - Hypoaesthesia [Recovering/Resolving]
  - Spinal fracture [Recovered/Resolved]
  - Post procedural infection [Recovering/Resolving]
  - Anal incontinence [Recovered/Resolved]
  - Back pain [Recovering/Resolving]
  - Staphylococcal infection [Recovering/Resolving]
  - Urinary incontinence [Recovered/Resolved]
  - Postoperative thrombosis [Unknown]

NARRATIVE: CASE EVENT DATE: 20161012
